FAERS Safety Report 23019049 (Version 2)
Quarter: 2023Q4

REPORT INFORMATION
  Report Type: Spontaneous
  Country: TH (occurrence: TH)
  Receive Date: 20231003
  Receipt Date: 20231213
  Transmission Date: 20240109
  Serious: Yes (Hospitalization, Other)
  Sender: FDA-Public Use
  Company Number: TH-002147023-NVSC2023TH209287

PATIENT
  Age: 5 Year
  Sex: Female

DRUGS (2)
  1. ELTROMBOPAG OLAMINE [Suspect]
     Active Substance: ELTROMBOPAG OLAMINE
     Indication: Immune thrombocytopenia
     Dosage: 25 MG, QD
     Route: 065
  2. ELTROMBOPAG OLAMINE [Suspect]
     Active Substance: ELTROMBOPAG OLAMINE
     Dosage: 50 MG, QD
     Route: 065

REACTIONS (5)
  - Epistaxis [Unknown]
  - Cerebral venous sinus thrombosis [Unknown]
  - Platelet count decreased [Unknown]
  - Platelet count increased [Unknown]
  - Headache [Unknown]

NARRATIVE: CASE EVENT DATE: 20230926
